FAERS Safety Report 8512892-5 (Version None)
Quarter: 2012Q3

REPORT INFORMATION
  Report Type: 
  Country: None (occurrence: None)
  Receive Date: 20120716
  Receipt Date: 20120710
  Transmission Date: 20120928
  Serious: Yes (Death, Hospitalization)
  Sender: FDA-Public Use
  Company Number: PHHY2011FR07278

PATIENT
  Age: 45 Year
  Sex: Male

DRUGS (3)
  1. RIFAMPICIN [Concomitant]
     Indication: TUBERCULOSIS
  2. ISONIAZID [Concomitant]
     Indication: TUBERCULOSIS
     Dosage: UNK
  3. PYRAZINAMIDE [Suspect]
     Indication: PULMONARY TUBERCULOSIS

REACTIONS (10)
  - CHRONIC HEPATITIS [None]
  - HIV INFECTION [None]
  - CONCOMITANT DISEASE AGGRAVATED [None]
  - MULTI-ORGAN FAILURE [None]
  - NEPHROPATHY TOXIC [None]
  - GENERAL PHYSICAL HEALTH DETERIORATION [None]
  - JAUNDICE [None]
  - PULMONARY TUBERCULOSIS [None]
  - SEPSIS [None]
  - ACUTE HEPATIC FAILURE [None]
